FAERS Safety Report 23045549 (Version 2)
Quarter: 2023Q4

REPORT INFORMATION
  Report Type: Report from Study
  Country: DE (occurrence: None)
  Receive Date: 20231009
  Receipt Date: 20231010
  Transmission Date: 20240109
  Serious: Yes (Death)
  Sender: FDA-Public Use
  Company Number: DE-ROCHE-3434559

PATIENT
  Age: 73 Year
  Sex: Male
  Weight: 90 kg

DRUGS (8)
  1. ATEZOLIZUMAB [Suspect]
     Active Substance: ATEZOLIZUMAB
     Indication: Hepatocellular carcinoma
     Dosage: ON 31/AUG/2023 PATIENT RECEIVED MOST RECENT DOSE OF ATEZOLIZUMAB
     Route: 065
     Dates: start: 20210916
  2. BEVACIZUMAB [Suspect]
     Active Substance: BEVACIZUMAB
     Indication: Hepatocellular carcinoma
     Dosage: ON 22/JUN/2023 PATIENT RECEIVED MOST RECENT DOSE OF BEVACIZUMAB
     Route: 065
     Dates: start: 20210916
  3. ASPIRIN [Concomitant]
     Active Substance: ASPIRIN
     Dates: start: 2016
  4. TYROSINE [Concomitant]
     Active Substance: TYROSINE
     Indication: Hypertension
     Dates: start: 2016
  5. METOPROLOL [Concomitant]
     Active Substance: METOPROLOL
     Dates: start: 2016
  6. RAMIPRIL [Concomitant]
     Active Substance: RAMIPRIL
     Dates: start: 2016
  7. TAMSULOSIN [Concomitant]
     Active Substance: TAMSULOSIN
  8. TORSEMIDE [Concomitant]
     Active Substance: TORSEMIDE
     Route: 048
     Dates: start: 2016

REACTIONS (1)
  - General physical health deterioration [Fatal]

NARRATIVE: CASE EVENT DATE: 20231003
